FAERS Safety Report 21075089 (Version 1)
Quarter: 2022Q3

REPORT INFORMATION
  Report Type: Spontaneous
  Country: US (occurrence: US)
  Receive Date: 20220713
  Receipt Date: 20220713
  Transmission Date: 20221026
  Serious: No
  Sender: FDA-Public Use
  Company Number: US-BoehringerIngelheim-2022-BI-180969

PATIENT

DRUGS (1)
  1. MELOXICAM [Suspect]
     Active Substance: MELOXICAM
     Indication: Product used for unknown indication

REACTIONS (3)
  - Chest pain [Unknown]
  - Dyspnoea [Unknown]
  - Dyspepsia [Unknown]
